FAERS Safety Report 19713501 (Version 1)
Quarter: 2021Q3

REPORT INFORMATION
  Report Type: Spontaneous
  Country: JP (occurrence: JP)
  Receive Date: 20210817
  Receipt Date: 20210817
  Transmission Date: 20211014
  Serious: Yes (Hospitalization, Other)
  Sender: FDA-Public Use
  Company Number: JP-SAKK-2021SA194242AA

PATIENT
  Age: 60 Year
  Sex: Male

DRUGS (2)
  1. DUPIXENT [Suspect]
     Active Substance: DUPILUMAB
     Indication: ASTHMA
     Dosage: 300 MG, QOW
     Route: 058
     Dates: start: 20210119, end: 20210525
  2. RELVAR [Concomitant]
     Active Substance: FLUTICASONE FUROATE\VILANTEROL TRIFENATATE
     Indication: PRODUCT USED FOR UNKNOWN INDICATION
     Dosage: 200 (UNIT, UNSPECIFIED) PER DAY
     Route: 065
     Dates: start: 201412

REACTIONS (6)
  - Musculoskeletal stiffness [Recovering/Resolving]
  - Interstitial lung disease [Recovering/Resolving]
  - Pruritus [Recovering/Resolving]
  - Neck pain [Recovering/Resolving]
  - Eosinophilic pneumonia [Recovering/Resolving]
  - Back pain [Recovering/Resolving]

NARRATIVE: CASE EVENT DATE: 20210506
